FAERS Safety Report 16682136 (Version 3)
Quarter: 2019Q3

REPORT INFORMATION
  Report Type: Report from Study
  Country: US (occurrence: US)
  Receive Date: 20190808
  Receipt Date: 20190827
  Transmission Date: 20191004
  Serious: Yes (Death)
  Sender: FDA-Public Use
  Company Number: US-BAUSCH-BL-2019-022846

PATIENT
  Age: 75 Year
  Sex: Female
  Weight: 54.03 kg

DRUGS (1)
  1. XIFAXAN [Suspect]
     Active Substance: RIFAXIMIN
     Indication: PRODUCT USED FOR UNKNOWN INDICATION
     Route: 048
     Dates: start: 2018

REACTIONS (4)
  - Renal failure [Fatal]
  - Septic shock [Fatal]
  - Ammonia increased [Fatal]
  - Product label issue [Unknown]

NARRATIVE: CASE EVENT DATE: 201907
